FAERS Safety Report 9702352 (Version 1)
Quarter: 2013Q4

REPORT INFORMATION
  Report Type: Spontaneous
  Country: US (occurrence: None)
  Receive Date: 20131119
  Receipt Date: 20131119
  Transmission Date: 20140711
  Serious: Yes (Life-Threatening, Hospitalization)
  Sender: FDA-Public Use
  Company Number: 2013P1020889

PATIENT
  Age: 11 Year
  Sex: Male

DRUGS (2)
  1. BENZTROPINE [Suspect]
     Route: 048
  2. RISPERIDONE [Suspect]

REACTIONS (9)
  - Tachycardia [None]
  - Mydriasis [None]
  - Mucous membrane disorder [None]
  - Anhidrosis [None]
  - Agitation [None]
  - Confusional state [None]
  - Heart rate increased [None]
  - Sinus tachycardia [None]
  - Mental status changes [None]
